FAERS Safety Report 17930611 (Version 1)
Quarter: 2020Q2

REPORT INFORMATION
  Report Type: Spontaneous
  Country: NL (occurrence: NL)
  Receive Date: 20200623
  Receipt Date: 20200623
  Transmission Date: 20200714
  Serious: Yes (Other)
  Sender: FDA-Public Use
  Company Number: NL-TEVA-2020-NL-1789595

PATIENT
  Age: 79 Year
  Sex: Male
  Weight: 100 kg

DRUGS (6)
  1. ESOMEPRAZOLE. [Suspect]
     Active Substance: ESOMEPRAZOLE MAGNESIUM
     Indication: PROPHYLAXIS AGAINST GASTROINTESTINAL ULCER
     Dosage: 1D1T. 40 MG
     Dates: start: 2017
  2. COZAAR (LOSARTAN) [Concomitant]
     Dosage: 50 MG (MILLIGRAMS)
  3. ACETYLSALICYLZUUR [Concomitant]
     Active Substance: ASPIRIN
     Dosage: 100 MG (MILLIGRAM)
  4. FUROSEMIDE. [Concomitant]
     Active Substance: FUROSEMIDE
     Dosage: 20 MG (MILLIGRAM)
  5. LEVOTHYROXINE. [Concomitant]
     Active Substance: LEVOTHYROXINE
     Dosage: 100 UG (MICROGRAM)
  6. BOOTS PHARMACEUTICALS (FOLIUMZUUR) [Concomitant]
     Dosage: 5 MG

REACTIONS (1)
  - Campylobacter gastroenteritis [Not Recovered/Not Resolved]

NARRATIVE: CASE EVENT DATE: 20200519
